FAERS Safety Report 7082749-8 (Version None)
Quarter: 2010Q4

REPORT INFORMATION
  Report Type: 
  Country: None (occurrence: None)
  Receive Date: 20101104
  Receipt Date: 20101101
  Transmission Date: 20110411
  Serious: Yes (Hospitalization, Other)
  Sender: FDA-Public Use
  Company Number: US-WYE-H18463510

PATIENT
  Sex: Female
  Weight: 63.56 kg

DRUGS (2)
  1. PREMPRO [Suspect]
     Indication: HOT FLUSH
     Route: 065
     Dates: start: 20050101
  2. TESTOSTERONE [Concomitant]
     Indication: PRODUCT USED FOR UNKNOWN INDICATION
     Dosage: 1%; UNKNOWN FREQUENCY
     Route: 065

REACTIONS (3)
  - CHOLECYSTECTOMY [None]
  - HORMONE LEVEL ABNORMAL [None]
  - SURGERY [None]
